FAERS Safety Report 7402803-8 (Version None)
Quarter: 2011Q2

REPORT INFORMATION
  Report Type: 
  Country: None (occurrence: None)
  Receive Date: 20110408
  Receipt Date: 20110328
  Transmission Date: 20111010
  Serious: Yes (Other)
  Sender: FDA-Public Use
  Company Number: PHEH2006US08961

PATIENT
  Sex: Female
  Weight: 87.074 kg

DRUGS (63)
  1. DEXAMETHASONE [Concomitant]
     Indication: MULTIPLE MYELOMA
     Dosage: UNK, UNK
     Route: 042
     Dates: start: 19990101, end: 20000101
  2. CARBAPENEMS [Concomitant]
  3. FORTAZ [Concomitant]
  4. DECADRON [Concomitant]
     Dosage: 4 MG, Q6H
  5. CIPROFLOXACIN [Concomitant]
     Dosage: 750 MG, Q12H
     Route: 048
  6. VITAMIN B-12 [Concomitant]
     Dosage: 1000 UG, QW
     Route: 048
  7. ZITHROMAX [Concomitant]
     Dosage: 250 MG
  8. DDAVP                                   /UNK/ [Concomitant]
     Dosage: 20 MCG, UNK
  9. PHOSLO [Concomitant]
     Dosage: 667 MG, TID MEALS
  10. PROCRIT [Concomitant]
     Indication: ANAEMIA
     Dosage: 40000 U, PRN
  11. ACYCLOVIR [Concomitant]
     Dosage: 400 MG, BID
     Route: 048
  12. PRILOSEC [Concomitant]
     Dosage: 20 MG, BID
     Route: 048
  13. NEPHROCAPS [Concomitant]
     Dosage: 1 GEL CAP QD
     Route: 048
  14. OVRAL [Concomitant]
     Dosage: 1 TABLET DAILY
     Route: 048
  15. DIFLUCAN [Concomitant]
     Dosage: 400 MG, QD
     Route: 048
  16. LIDOCAINE [Concomitant]
     Dosage: 1 %, UNK
     Route: 058
  17. MULTI-VITAMINS [Concomitant]
  18. AREDIA [Suspect]
     Dosage: 30 MG, QMO
     Route: 042
     Dates: start: 20020201
  19. VINCRISTINE [Concomitant]
     Indication: MULTIPLE MYELOMA
     Dates: start: 19990101, end: 20000101
  20. CYTOXAN [Concomitant]
     Indication: MULTIPLE MYELOMA
     Dosage: 4.5 GM/M2, UNK
     Route: 042
     Dates: start: 20000301, end: 20000401
  21. PERCOCET [Concomitant]
     Indication: PAIN
     Dosage: 1 TABLET PO
  22. NEUPOGEN [Concomitant]
     Dosage: 300 MCG, UNK
     Route: 058
  23. NIFEREX (POLYSACCHARIDE-IRON COMPLEX) [Concomitant]
     Dosage: 150 MG, BID
  24. CALCIUM CARBONATE [Concomitant]
     Dosage: 1250 MG, TID AC
     Route: 048
  25. REGLAN [Concomitant]
     Dosage: 5 MG, UNK
  26. AREDIA [Suspect]
     Dosage: 90 MG, QMO
     Dates: start: 19990903, end: 20020410
  27. XANAX [Concomitant]
     Indication: DEPRESSION
     Dosage: 0.5MG Q8H PRN
     Route: 048
  28. TUMS [Concomitant]
  29. EPOGEN [Concomitant]
  30. NEOSPORIN OPHTHALMIC SOLUTION [Concomitant]
     Dosage: 2 GTT, UNK
  31. DDAVP                                   /UNK/ [Concomitant]
     Dosage: 15 MCG, UNK
  32. MELPHALAN [Concomitant]
     Dosage: 200 MG/M2, UNK
  33. OXYCODONE [Concomitant]
     Indication: PAIN
     Dosage: 5MG Q6H PRN
     Route: 048
  34. PENICILLIN ^GRUNENTHAL^ [Concomitant]
  35. DURAGESIC [Concomitant]
  36. CHEMOTHERAPEUTICS NOS [Concomitant]
     Dosage: UNK
     Dates: start: 19990101
  37. COMPAZINE [Concomitant]
     Indication: VOMITING
  38. FAMVIR                                  /UNK/ [Concomitant]
     Dosage: 250 MG
  39. ACETAMINOPHEN [Concomitant]
  40. LACTULOSE [Concomitant]
     Dosage: 20 G, BID
     Route: 048
  41. ZOMETA [Suspect]
     Dosage: 4 MG, QMO
     Dates: start: 20020508, end: 20041013
  42. FOLIC ACID [Concomitant]
     Dosage: 2 MG, QD
     Route: 048
  43. COLACE [Concomitant]
     Dosage: 100 MG, QD
  44. COMPAZINE [Concomitant]
     Indication: NAUSEA
     Dosage: 10 MG, Q4H PRN
     Route: 048
  45. POTASSIUM CHLORIDE [Concomitant]
     Dosage: 20 MEQ, UNK
  46. FAMVIR                                  /UNK/ [Concomitant]
     Dosage: UNK
     Dates: start: 20000901
  47. RESTORIL [Concomitant]
     Indication: INSOMNIA
     Dosage: 15 MG, QHS
  48. CLARITIN-D [Concomitant]
     Dosage: UNK
  49. LASIX [Concomitant]
     Dosage: 60 MG, UNK
  50. METHYLPREDNISOLONE [Concomitant]
     Dosage: 50 MG, UNK
  51. BEN-GAY [Concomitant]
     Dosage: UNK
     Route: 061
  52. VICODIN [Concomitant]
  53. ADRIAMYCIN PFS [Concomitant]
     Dosage: UNK, UNK
     Route: 042
     Dates: start: 19990101, end: 20000101
  54. NIFEREX [Concomitant]
     Dosage: 150 MG, QD
     Route: 048
  55. CEPHALOSPORINES [Concomitant]
  56. AZTREONAM [Concomitant]
  57. LEVAQUIN [Concomitant]
     Dosage: 250 MG, QOD
  58. MYCELEX [Concomitant]
  59. ZOLOFT [Concomitant]
     Dosage: 50 MG, UNK
  60. KYTRIL [Concomitant]
     Dosage: 1000 MCG, UNK
  61. ALBUMIN ^BEHRING^ [Concomitant]
  62. BENADRYL ^ACHE^ [Concomitant]
     Dosage: 25 MG, UNK
  63. DARVOCET-N 50 [Concomitant]
     Dosage: UNK, Q6H PRN MODERATE PAIN

REACTIONS (76)
  - GINGIVITIS [None]
  - GINGIVAL PAIN [None]
  - STOMATITIS [None]
  - ORAL DISORDER [None]
  - PLASMACYTOMA [None]
  - BONE LESION [None]
  - RHINORRHOEA [None]
  - UPPER-AIRWAY COUGH SYNDROME [None]
  - BONE DISORDER [None]
  - INFECTION [None]
  - PAIN IN JAW [None]
  - MYALGIA [None]
  - HEADACHE [None]
  - STRESS [None]
  - TOOTH DISORDER [None]
  - ORAL DISCOMFORT [None]
  - SOFT TISSUE INFLAMMATION [None]
  - HERPES ZOSTER [None]
  - INFLUENZA LIKE ILLNESS [None]
  - BONE PAIN [None]
  - MUSCULOSKELETAL CHEST PAIN [None]
  - BLOOD CALCIUM DECREASED [None]
  - PYREXIA [None]
  - BONE FRAGMENTATION [None]
  - IRRITABLE BOWEL SYNDROME [None]
  - EPIGASTRIC DISCOMFORT [None]
  - RETINAL INFARCTION [None]
  - BONE CYST [None]
  - ABSCESS [None]
  - GINGIVAL SWELLING [None]
  - ALOPECIA [None]
  - SYNOVIAL CYST [None]
  - PHARYNGITIS [None]
  - ACUTE SINUSITIS [None]
  - LUNG DISORDER [None]
  - DYSPEPSIA [None]
  - FREQUENT BOWEL MOVEMENTS [None]
  - VISUAL IMPAIRMENT [None]
  - TOOTH FRACTURE [None]
  - WOUND COMPLICATION [None]
  - SOFT TISSUE INFECTION [None]
  - VAGINAL HAEMORRHAGE [None]
  - SINUS TACHYCARDIA [None]
  - SINUS HEADACHE [None]
  - LARYNGITIS [None]
  - OSTEONECROSIS OF JAW [None]
  - PAIN [None]
  - MASTICATION DISORDER [None]
  - GINGIVAL BLEEDING [None]
  - WOUND SECRETION [None]
  - NEOPLASM MALIGNANT [None]
  - TEMPOROMANDIBULAR JOINT SYNDROME [None]
  - ANAEMIA [None]
  - BRONCHITIS [None]
  - EAR PAIN [None]
  - ANXIETY [None]
  - IMPAIRED HEALING [None]
  - TONGUE INJURY [None]
  - HYPERNATRAEMIA [None]
  - DISEASE PROGRESSION [None]
  - SPLENOMEGALY [None]
  - HYPERCHOLESTEROLAEMIA [None]
  - HOT FLUSH [None]
  - MITRAL VALVE INCOMPETENCE [None]
  - TRICUSPID VALVE INCOMPETENCE [None]
  - DIZZINESS [None]
  - INJURY [None]
  - GINGIVAL EROSION [None]
  - MOUTH HAEMORRHAGE [None]
  - GINGIVAL HYPERTROPHY [None]
  - GASTROINTESTINAL DISORDER [None]
  - ARTHRALGIA [None]
  - HYPERKALAEMIA [None]
  - ELECTROCARDIOGRAM QT PROLONGED [None]
  - COUGH [None]
  - FACIAL PAIN [None]
